FAERS Safety Report 8432656 (Version 2)
Quarter: 2012Q4

REPORT INFORMATION
  Report Type: 
  Country: ES (occurrence: ES)
  Receive Date: 20120229
  Receipt Date: 20121005
  Transmission Date: 20130627
  Serious: Yes (Hospitalization, Other)
  Sender: FDA-Public Use
  Company Number: ES-AMGEN-ESPSP2012010910

PATIENT
  Age: 59 Year
  Sex: Male
  Weight: 67.5 kg

DRUGS (15)
  1. MIMPARA [Suspect]
     Indication: HYPERPARATHYROIDISM SECONDARY
     Dosage: 30 mg, qd
     Dates: start: 200711
  2. MIMPARA [Suspect]
     Dosage: 60 mg, qd
     Route: 048
     Dates: start: 20100302
  3. MIMPARA [Suspect]
     Dosage: 30 mg, 3 times/wk
  4. EPOGEN [Concomitant]
     Dosage: 2000 IU, 3 times/wk
     Route: 042
  5. OSVAREN [Concomitant]
     Dosage: UNK UNK, qd
     Route: 048
     Dates: start: 20111207
  6. MOLSIDAIN [Concomitant]
     Dosage: 6 mg, qd
     Route: 048
     Dates: start: 20091116
  7. CARDYL [Concomitant]
     Dosage: 20 mg, qd
     Route: 048
     Dates: start: 20120206
  8. ACFOL [Concomitant]
     Dosage: 5 mg, qd
     Route: 048
     Dates: start: 20091116
  9. EMCONCOR [Concomitant]
     Dosage: 2.5 mg, qd
     Route: 048
     Dates: start: 20091116
  10. ISCOVER [Concomitant]
     Dosage: 75 mg, qd
     Route: 048
     Dates: start: 20091116
  11. ISCOVER [Concomitant]
     Dosage: UNK
  12. OMEPRAZOL ALTER [Concomitant]
     Dosage: 40 mg, qd
     Route: 048
     Dates: start: 20091116
  13. TROMALYT [Concomitant]
     Dosage: 150 mg, qd
     Route: 048
     Dates: start: 20091116
  14. IRON [Concomitant]
     Dosage: 100 mg, q4wk
     Route: 042
  15. ASCORBIC ACID [Concomitant]
     Dosage: 1000 mg, 3 times/wk
     Route: 042

REACTIONS (6)
  - Chronic obstructive pulmonary disease [Unknown]
  - Bronchitis [Unknown]
  - Night blindness [Unknown]
  - Vitamin A deficiency [Unknown]
  - Myalgia [Recovered/Resolved]
  - Drug hypersensitivity [Unknown]
